FAERS Safety Report 6811816-6 (Version None)
Quarter: 2010Q2

REPORT INFORMATION
  Report Type: 
  Country: None (occurrence: None)
  Receive Date: 20100628
  Receipt Date: 20100607
  Transmission Date: 20101027
  Serious: Yes (Hospitalization)
  Sender: FDA-Public Use
  Company Number: DKLU1063160

PATIENT
  Sex: Male

DRUGS (3)
  1. SABRIL [Suspect]
     Indication: CONVULSION
  2. LASIX [Concomitant]
  3. FERRO SANOL (FERROUS SULFATE) [Concomitant]

REACTIONS (3)
  - DRUG INTERACTION [None]
  - HYPERTHERMIA MALIGNANT [None]
  - RESTLESSNESS [None]
